FAERS Safety Report 19623237 (Version 1)
Quarter: 2021Q3

REPORT INFORMATION
  Report Type: Report from Study
  Country: EG (occurrence: EG)
  Receive Date: 20210728
  Receipt Date: 20210728
  Transmission Date: 20211014
  Serious: Yes (Death, Hospitalization)
  Sender: FDA-Public Use
  Company Number: NVSC2021EG131755

PATIENT
  Age: 63 Year
  Sex: Male

DRUGS (3)
  1. ZYLORIC [Concomitant]
     Active Substance: ALLOPURINOL
     Indication: PRODUCT USED FOR UNKNOWN INDICATION
     Dosage: UNK DF, QD (100) (STARTED SINCE 2018 AND CONTINUED JUST ABOUT 2 MONTHS THEN STOPPED IT AS URIC ACID
     Route: 065
     Dates: start: 2018
  2. METHOTREXATE. [Concomitant]
     Active Substance: METHOTREXATE
     Indication: PRODUCT USED FOR UNKNOWN INDICATION
     Dosage: UNK (STARTED SINCE 10 YEARS AND CONTINUED ONE YEAR AFTER STARTING)
     Route: 065
  3. TASIGNA [Suspect]
     Active Substance: NILOTINIB
     Indication: CHRONIC MYELOID LEUKAEMIA
     Dosage: 4 DF, QD
     Route: 065
     Dates: end: 202106

REACTIONS (2)
  - Haemoglobin decreased [Fatal]
  - Anaemia [Fatal]
